FAERS Safety Report 4395285-4 (Version None)
Quarter: 2004Q3

REPORT INFORMATION
  Report Type: 
  Country: None (occurrence: None)
  Receive Date: 20040707
  Receipt Date: 20040630
  Transmission Date: 20050211
  Serious: Yes (Hospitalization)
  Sender: FDA-Public Use
  Company Number: FRP04000560

PATIENT
  Age: 50 Year
  Sex: Female

DRUGS (2)
  1. ACTONEL [Suspect]
     Indication: OSTEOPOROSIS
     Dosage: ORAL
     Route: 048
  2. ZYLORIC ^GLAXO WELLCOME^ (ALLOPURINOL) [Concomitant]

REACTIONS (2)
  - HYPOCALCAEMIA [None]
  - RENAL FAILURE ACUTE [None]
